FAERS Safety Report 8479353-3 (Version None)
Quarter: 2012Q2

REPORT INFORMATION
  Report Type: 
  Country: None (occurrence: None)
  Receive Date: 20120629
  Receipt Date: 20120621
  Transmission Date: 20120825
  Serious: Yes (Hospitalization)
  Sender: FDA-Public Use
  Company Number: US-CELGENEUS-163-21880-12061841

PATIENT
  Sex: Female
  Weight: 135.75 kg

DRUGS (11)
  1. ASPIRIN [Concomitant]
     Dosage: 81 MILLIGRAM
     Route: 065
  2. TRIBENZOR [Concomitant]
     Indication: HYPERTENSION
     Dosage: 25 MILLIGRAM
     Route: 065
  3. COUMADIN [Concomitant]
     Dosage: 10 MILLIGRAM
     Route: 065
  4. REVLIMID [Suspect]
     Dosage: 25 MILLIGRAM
     Route: 048
     Dates: start: 20110201
  5. VALACYCLOVIR HYDROCHLORIDE [Concomitant]
     Indication: VIRAL INFECTION
     Dosage: 500 MILLIGRAM
     Route: 065
  6. VITAMIN D [Concomitant]
     Route: 065
  7. REVLIMID [Suspect]
     Indication: MULTIPLE MYELOMA
     Dosage: 5 MILLIGRAM
     Route: 048
     Dates: start: 20110101
  8. SULFAMETHOXAZOLE AND TRIMETHOPRIM DOUBLE STRENGTH [Concomitant]
     Indication: ANTIBIOTIC PROPHYLAXIS
     Dosage: 800/160MG
     Route: 065
  9. COUMADIN [Concomitant]
     Dosage: 7.5 MILLIGRAM
     Route: 065
  10. REVLIMID [Suspect]
     Dosage: 10 MILLIGRAM
     Route: 048
     Dates: start: 20120112
  11. PRADAXA [Concomitant]
     Dosage: 150 MILLIGRAM
     Route: 065

REACTIONS (1)
  - COLITIS [None]
